FAERS Safety Report 15324758 (Version 2)
Quarter: 2018Q3

REPORT INFORMATION
  Report Type: Spontaneous
  Country: US (occurrence: US)
  Receive Date: 20180828
  Receipt Date: 20180831
  Transmission Date: 20181010
  Serious: Yes (Other)
  Sender: FDA-Public Use
  Company Number: US-TEVA-2018-US-948624

PATIENT
  Age: 65 Year
  Sex: Male

DRUGS (2)
  1. DIAZEPAM. [Suspect]
     Active Substance: DIAZEPAM
     Indication: HYPOTONIA
  2. DIAZEPAM. [Suspect]
     Active Substance: DIAZEPAM
     Indication: ANXIETY
     Route: 065
     Dates: start: 20180717

REACTIONS (7)
  - Drug ineffective [Unknown]
  - Heart rate irregular [Unknown]
  - Supraventricular extrasystoles [Unknown]
  - Heart rate decreased [Unknown]
  - Dehydration [Unknown]
  - Orthostatic hypotension [Unknown]
  - Blood pressure increased [Unknown]
